FAERS Safety Report 13799213 (Version 1)
Quarter: 2017Q3

REPORT INFORMATION
  Report Type: Spontaneous
  Country: US (occurrence: US)
  Receive Date: 20170727
  Receipt Date: 20170727
  Transmission Date: 20171127
  Serious: No
  Sender: FDA-Public Use
  Company Number: US-JNJFOC-20170211455

PATIENT
  Sex: Female

DRUGS (4)
  1. ROGAINE [Suspect]
     Active Substance: MINOXIDIL
     Indication: ALOPECIA
     Route: 065
  2. ROGAINE [Suspect]
     Active Substance: MINOXIDIL
     Route: 065
  3. ROGAINE [Suspect]
     Active Substance: MINOXIDIL
     Indication: ALOPECIA
     Route: 065
  4. ROGAINE [Suspect]
     Active Substance: MINOXIDIL
     Route: 065

REACTIONS (2)
  - Dizziness [Unknown]
  - Weight increased [Unknown]
